FAERS Safety Report 6461801-1 (Version None)
Quarter: 2009Q4

REPORT INFORMATION
  Report Type: 
  Country: None (occurrence: None)
  Receive Date: 20091130
  Receipt Date: 20091120
  Transmission Date: 20100525
  Serious: Yes (Disabling)
  Sender: FDA-Public Use
  Company Number: RU-BRISTOL-MYERS SQUIBB COMPANY-13239751

PATIENT
  Age: 68 Year
  Sex: Female
  Weight: 90 kg

DRUGS (9)
  1. IRBESARTAN [Suspect]
     Indication: HYPERTENSION
     Dates: start: 20050927
  2. CLOPIDOGREL BISULFATE [Suspect]
     Indication: PROPHYLAXIS
     Dates: start: 20050927
  3. ASPIRIN [Suspect]
     Indication: PROPHYLAXIS
     Dates: start: 20050927
  4. ACETYLCYSTEINE [Concomitant]
  5. ASPIRIN [Concomitant]
  6. CIPROFLOXACIN [Concomitant]
  7. HYLAK FORTE [Concomitant]
  8. LORATADINE [Concomitant]
  9. ROXITHROMYCIN [Concomitant]

REACTIONS (4)
  - ASTHMA [None]
  - BRONCHITIS CHRONIC [None]
  - DERMATITIS ALLERGIC [None]
  - ERYSIPELAS [None]
